FAERS Safety Report 24696621 (Version 2)
Quarter: 2024Q4

REPORT INFORMATION
  Report Type: Spontaneous
  Country: US (occurrence: US)
  Receive Date: 20241204
  Receipt Date: 20241211
  Transmission Date: 20250114
  Serious: Yes (Other)
  Sender: AMGEN
  Company Number: US-AMGEN-USASP2024235603

PATIENT
  Age: 66 Year
  Sex: Female

DRUGS (43)
  1. TEPEZZA [Suspect]
     Active Substance: TEPROTUMUMAB-TRBW
     Indication: Toxic goitre
     Dosage: 790 MILLIGRAM, Q3WK
     Route: 040
     Dates: start: 20220623
  2. TEPEZZA [Suspect]
     Active Substance: TEPROTUMUMAB-TRBW
     Dosage: 1580 MILLIGRAM, Q3WK
     Route: 040
     Dates: start: 20220714
  3. TEPEZZA [Suspect]
     Active Substance: TEPROTUMUMAB-TRBW
     Dosage: 1580 MILLIGRAM, Q3WK
     Route: 040
     Dates: start: 20220804
  4. TEPEZZA [Suspect]
     Active Substance: TEPROTUMUMAB-TRBW
     Dosage: 1580 MILLIGRAM, Q3WK
     Route: 040
     Dates: start: 20220908
  5. TEPEZZA [Suspect]
     Active Substance: TEPROTUMUMAB-TRBW
     Dosage: 1580 MILLIGRAM, Q3WK
     Route: 040
     Dates: start: 20220930
  6. TEPEZZA [Suspect]
     Active Substance: TEPROTUMUMAB-TRBW
     Dosage: 1580 MILLIGRAM, Q3WK
     Route: 040
     Dates: start: 20221021
  7. TEPEZZA [Suspect]
     Active Substance: TEPROTUMUMAB-TRBW
     Dosage: 1580 MILLIGRAM, Q3WK
     Route: 040
     Dates: start: 20221111
  8. TEPEZZA [Suspect]
     Active Substance: TEPROTUMUMAB-TRBW
     Dosage: 1580 MILLIGRAM, Q3WK
     Route: 040
     Dates: start: 20221202, end: 20221202
  9. NORVASC [Concomitant]
     Active Substance: AMLODIPINE BESYLATE
     Dosage: 5 MILLIGRAM, QD
     Route: 048
  10. LIPITOR [Concomitant]
     Active Substance: ATORVASTATIN CALCIUM
     Dosage: 10 MILLIGRAM, QD
     Route: 048
  11. ASTELIN [Concomitant]
     Active Substance: AZELASTINE HYDROCHLORIDE
     Dosage: UNK (ADMINISTER 2 SPRAYS INTO EACH NOSTRIL 2 TIMES A DAY)
     Route: 045
  12. BIOTIN [Concomitant]
     Active Substance: BIOTIN
     Dosage: 1 MILLIGRAM
     Route: 048
  13. CALCIUM GLUCONATE [Concomitant]
     Active Substance: CALCIUM GLUCONATE
     Dosage: 500 MILLIGRAM, QD
     Route: 048
  14. CHANTIX [Concomitant]
     Active Substance: VARENICLINE TARTRATE
     Dosage: 0.5 MILLIGRAM, QD (TAKE 0.5 MG ONE DAILY ON DAYS 1-3 DAYS)
     Route: 048
  15. CHANTIX [Concomitant]
     Active Substance: VARENICLINE TARTRATE
     Dosage: 0.5 MILLIGRAM, BID (THEN TAKE 0.5 MG TWICE DAILY ON DAYS 4-7)
     Route: 048
  16. CHANTIX [Concomitant]
     Active Substance: VARENICLINE TARTRATE
     Dosage: 1 MILLIGRAM, BID (TAKE 1 MG TWICE DAILY FOR A TOTAL OF 12 WEEKS)
     Route: 048
  17. VITAMIN D3 [Concomitant]
     Active Substance: CHOLECALCIFEROL
     Dosage: 1000 INTERNATIONAL UNIT, QD
     Route: 048
  18. CYANOCOBALAMIN [Concomitant]
     Active Substance: CYANOCOBALAMIN
     Dosage: 2500 MICROGRAM (EVERY OTHER DAY)
     Route: 048
  19. FLEXERIL [Concomitant]
     Active Substance: CYCLOBENZAPRINE HYDROCHLORIDE
     Indication: Muscle spasms
     Dosage: 10 MILLIGRAM, TID
     Route: 048
  20. EPIPEN [Concomitant]
     Active Substance: EPINEPHRINE
     Indication: Anaphylactic reaction
     Dosage: 0.3 MILLIGRAM (0.3ML)
     Route: 065
     Dates: start: 20190808
  21. FERROUS SULFATE [Concomitant]
     Active Substance: FERROUS SULFATE
     Dosage: 65 MILLIGRAM, QD
     Route: 048
  22. FLONASE [Concomitant]
     Active Substance: FLUTICASONE PROPIONATE
     Dosage: UNK (ADMINISTER 1 SPRAY INTO EACH NOSTRIL ONCE DAILY)
     Route: 045
  23. MONOPRIL [Concomitant]
     Active Substance: FOSINOPRIL SODIUM
     Dosage: 40 MILLIGRAM, QD
     Route: 048
  24. HYDRODIURIL [Concomitant]
     Active Substance: HYDROCHLOROTHIAZIDE
     Dosage: 25 MILLIGRAM (TAKE 2 TABLETS (SO MG TOTAL) BY MOUTH ONCE DAILY)
     Route: 048
  25. TIROSINT [Concomitant]
     Active Substance: LEVOTHYROXINE SODIUM
     Dosage: 137 MICROGRAM
     Route: 048
  26. VITAMINS [Concomitant]
     Active Substance: VITAMINS
     Dosage: UNK, BID (TAKE 1 TABLET WITH FOOD)
     Route: 048
  27. TRULICITY [Concomitant]
     Active Substance: DULAGLUTIDE
     Dosage: UNK (0.75 MG/0.5 ML)
     Route: 065
  28. STELARA [Concomitant]
     Active Substance: USTEKINUMAB
     Dosage: UNK
     Route: 065
  29. EFFEXOR [Concomitant]
     Active Substance: VENLAFAXINE HYDROCHLORIDE
     Dosage: 150 MILLIGRAM, QD
     Route: 048
  30. VITAMIN A [Concomitant]
     Active Substance: VITAMIN A
     Dosage: 3000 MICROGRAM, QD
     Route: 048
  31. AMBIEN [Concomitant]
     Active Substance: ZOLPIDEM TARTRATE
     Dosage: UNK (A HALF TABLET BY MOUTH NIGHTLY AS NEEDED FOR SLEEP)
     Route: 048
  32. INFLUENZA VIRUS VACCINE [Concomitant]
     Active Substance: INFLUENZA VIRUS VACCINE
     Dosage: UNK
     Route: 065
     Dates: start: 20211001
  33. LASIX [Concomitant]
     Active Substance: FUROSEMIDE
     Dosage: 20 MILLIGRAM, QD
     Route: 048
  34. TOBRADEX [Concomitant]
     Active Substance: DEXAMETHASONE\TOBRAMYCIN
     Dosage: UNK, BID
     Route: 047
  35. VITAMIN B COMPLEX [Concomitant]
     Active Substance: CYANOCOBALAMIN\DEXPANTHENOL\NIACINAMIDE\PYRIDOXINE HYDROCHLORIDE\RIBOFLAVIN 5^-PHOSPHATE SODIUM\THIA
     Dosage: UNK
     Route: 048
  36. ZINC [Concomitant]
     Active Substance: ZINC
     Dosage: 50 MILLIGRAM, QD
     Route: 048
  37. IRON [Concomitant]
     Active Substance: IRON
     Dosage: 90 MILLIGRAM (TWO TABLETS ONCE A DAY)
     Route: 048
  38. ZOLOFT [Concomitant]
     Active Substance: SERTRALINE HYDROCHLORIDE
     Dosage: 100 MILLIGRAM, QD
     Route: 048
  39. HYDROXYZINE HYDROCHLORIDE [Concomitant]
     Active Substance: HYDROXYZINE HYDROCHLORIDE
     Dosage: 50 MILLIGRAM, QD (ONE TABLET ONE HOUR PRIOR TO TEPEZZA INFUSION)
     Route: 048
  40. SYSTANE (HYPROMELLOSE 2910 (4000 MPA.S)) [Concomitant]
     Active Substance: HYPROMELLOSE 2910 (4000 MPA.S)
     Dosage: UNK
     Route: 047
  41. GABAPENTIN [Concomitant]
     Active Substance: GABAPENTIN
     Dosage: 300 MILLIGRAM, BID
     Route: 048
  42. QSYMIA [Concomitant]
     Active Substance: PHENTERMINE HYDROCHLORIDE\TOPIRAMATE
     Dosage: UNK UNK, QD
     Route: 048
     Dates: start: 20190805
  43. SODIUM CHLORIDE [Concomitant]
     Active Substance: SODIUM CHLORIDE
     Dosage: UNK
     Route: 065

REACTIONS (6)
  - Deafness neurosensory [Unknown]
  - Psoriasis [Unknown]
  - Dyspnoea [Recovering/Resolving]
  - Blood pressure increased [Unknown]
  - Muscle spasms [Recovering/Resolving]
  - Dry skin [Unknown]

NARRATIVE: CASE EVENT DATE: 20220623
